FAERS Safety Report 24693608 (Version 3)
Quarter: 2024Q4

REPORT INFORMATION
  Report Type: Report from Study
  Country: IL (occurrence: IL)
  Receive Date: 20241204
  Receipt Date: 20241220
  Transmission Date: 20250115
  Serious: Yes (Hospitalization)
  Sender: ABBVIE
  Company Number: IL-ABBVIE-6029017

PATIENT
  Age: 76 Year
  Sex: Male

DRUGS (2)
  1. CARBIDOPA\LEVODOPA [Suspect]
     Active Substance: CARBIDOPA\LEVODOPA
     Indication: Parkinson^s disease
     Route: 050
     Dates: start: 20210809
  2. CARBIDOPA\LEVODOPA [Suspect]
     Active Substance: CARBIDOPA\LEVODOPA
     Dosage: MORNING DOSAGE 1.5ML,CONTINUOUS DOSAGE1.8ML/H, EXTRA DOSAGE 1ML
     Route: 050

REACTIONS (4)
  - Medical device battery replacement [Unknown]
  - Malaise [Unknown]
  - Asthenia [Recovered/Resolved]
  - Vomiting [Unknown]
